FAERS Safety Report 16748576 (Version 1)
Quarter: 2019Q3

REPORT INFORMATION
  Report Type: Report from Study
  Country: None (occurrence: HU)
  Receive Date: 20190828
  Receipt Date: 20190828
  Transmission Date: 20191005
  Serious: Yes (Hospitalization)
  Sender: FDA-Public Use
  Company Number: HU-ABBVIE-19K-076-2900866-00

PATIENT
  Age: 59 Year
  Sex: Male

DRUGS (5)
  1. NORMODIPINE [Concomitant]
     Active Substance: AMLODIPINE BESYLATE
     Indication: HYPERTENSION
     Dosage: 1 TABLET AT A TIME?SEVERAL YEARS AGO
  2. JANUMET [Concomitant]
     Active Substance: METFORMIN HYDROCHLORIDE\SITAGLIPTIN PHOSPHATE
     Indication: DIABETES MELLITUS
     Dosage: 1 TABLET AT A TIME?SEVERAL YEARS AGO
     Route: 048
  3. METAMIZOL HEXAL [Concomitant]
     Active Substance: METAMIZOLE SODIUM
     Indication: INTERVERTEBRAL DISC PROTRUSION
     Dosage: 1 TABLET AT A TIME?SEVERAL YEARS AGO
     Route: 048
  4. HUMIRA [Suspect]
     Active Substance: ADALIMUMAB
     Indication: RHEUMATOID ARTHRITIS
     Route: 058
     Dates: start: 201709, end: 2019
  5. DOXAZOSIN HEXAL [Concomitant]
     Indication: HYPERTENSION
     Dosage: 1 TABLET AT A TIME?SEVERAL YEARS AGO
     Route: 048

REACTIONS (3)
  - Gait inability [Unknown]
  - Intervertebral disc protrusion [Not Recovered/Not Resolved]
  - Joint swelling [Unknown]

NARRATIVE: CASE EVENT DATE: 201905
